FAERS Safety Report 16425493 (Version 16)
Quarter: 2023Q1

REPORT INFORMATION
  Report Type: Spontaneous
  Country: US (occurrence: US)
  Receive Date: 20190613
  Receipt Date: 20230208
  Transmission Date: 20230417
  Serious: Yes (Other)
  Sender: FDA-Public Use
  Company Number: US-PFIZER INC-2019248284

PATIENT
  Age: 56 Year
  Sex: Female
  Weight: 62.6 kg

DRUGS (2)
  1. PREMPRO [Suspect]
     Active Substance: ESTROGENS, CONJUGATED\MEDROXYPROGESTERONE ACETATE
     Indication: Menopause
     Dosage: 0.625MG/2.5MG , 1X/DAY (0.625MG/2.5MG ONE A DAY, BY MOUTH)
     Route: 048
     Dates: start: 2005
  2. PREMPRO [Suspect]
     Active Substance: ESTROGENS, CONJUGATED\MEDROXYPROGESTERONE ACETATE
     Indication: Menopausal symptoms
     Dosage: 1 DF, DAILY (ESTROGENS CONJUGATED: 0.625 MG / MEDROXYPROGESTERONE ACETATE: 2.5 MG)
     Route: 048
     Dates: start: 2011

REACTIONS (14)
  - Syncope [Unknown]
  - Drug ineffective [Unknown]
  - Blood pressure increased [Unknown]
  - Headache [Unknown]
  - Speech disorder [Unknown]
  - Disturbance in attention [Unknown]
  - Illness [Unknown]
  - Migraine [Unknown]
  - Mood swings [Unknown]
  - Memory impairment [Unknown]
  - Behaviour disorder [Unknown]
  - Head injury [Unknown]
  - Fatigue [Unknown]
  - Stress [Unknown]

NARRATIVE: CASE EVENT DATE: 20210830
